FAERS Safety Report 8481293-0 (Version None)
Quarter: 2012Q3

REPORT INFORMATION
  Report Type: 
  Country: None (occurrence: None)
  Receive Date: 20120702
  Receipt Date: 20120627
  Transmission Date: 20120928
  Serious: Yes (Other)
  Sender: FDA-Public Use
  Company Number: US-PFIZER INC-2012155142

PATIENT
  Sex: Female

DRUGS (1)
  1. ZITHROMAX [Suspect]
     Dosage: UNK

REACTIONS (1)
  - LUNG INFECTION [None]
